FAERS Safety Report 10279778 (Version 1)
Quarter: 2014Q3

REPORT INFORMATION
  Report Type: Report from Study
  Country: US (occurrence: None)
  Receive Date: 20140701
  Receipt Date: 20140701
  Transmission Date: 20150326
  Serious: Yes (Death, Other)
  Sender: FDA-Public Use
  Company Number: ADR-2014-01118

PATIENT
  Age: 54 Year
  Sex: Female

DRUGS (2)
  1. COMPOUNDED BACLOFEN (INTRATHECAL 2,100 MCG/ML [Suspect]
     Active Substance: BACLOFEN
     Indication: MUSCLE SPASTICITY
     Dosage: 425.3 MCG/DAY
     Dates: start: 20131024
  2. DILAUDID [Suspect]
     Active Substance: HYDROMORPHONE HYDROCHLORIDE
     Indication: MUSCLE SPASTICITY
     Dosage: 25.32 MCG/DAY

REACTIONS (2)
  - Pneumonia [None]
  - Disease complication [None]

NARRATIVE: CASE EVENT DATE: 20131127
